FAERS Safety Report 5578180-4 (Version None)
Quarter: 2007Q4

REPORT INFORMATION
  Report Type: 
  Country: None (occurrence: None)
  Receive Date: 20071227
  Receipt Date: 20071208
  Transmission Date: 20080405
  Serious: Yes (Hospitalization)
  Sender: FDA-Public Use
  Company Number: 2007BM000196

PATIENT
  Age: 22 Year
  Sex: Female

DRUGS (4)
  1. PREDNISONE [Suspect]
     Indication: COLITIS ULCERATIVE
  2. AZATHIOPRINE [Suspect]
     Indication: COLITIS ULCERATIVE
  3. ORAPRED [Suspect]
  4. AMINOSALICYLATE SODIUM [Concomitant]

REACTIONS (4)
  - BRAIN HERNIATION [None]
  - CEREBRAL HAEMORRHAGE [None]
  - DEPRESSED LEVEL OF CONSCIOUSNESS [None]
  - ENCEPHALITIS HERPES [None]
